FAERS Safety Report 6694546-3 (Version None)
Quarter: 2010Q2

REPORT INFORMATION
  Report Type: 
  Country: None (occurrence: None)
  Receive Date: 20100423
  Receipt Date: 20100414
  Transmission Date: 20101027
  Serious: Yes (Life-Threatening)
  Sender: FDA-Public Use
  Company Number: NL-TEVA-231165ISR

PATIENT
  Sex: Female

DRUGS (4)
  1. LORAZEPAM [Suspect]
     Indication: INSOMNIA
     Dates: start: 20100312, end: 20100314
  2. TRAMADOL HYDROCHLORIDE [Suspect]
     Indication: PAIN
     Dates: start: 20100115, end: 20100328
  3. OMEPRAZOLE [Concomitant]
     Dates: start: 20100216, end: 20100305
  4. NADROPARIN CALCIUM [Concomitant]
     Dates: start: 20100216, end: 20100309

REACTIONS (3)
  - DELUSION [None]
  - INTENTIONAL SELF-INJURY [None]
  - SELF-INJURIOUS IDEATION [None]
